FAERS Safety Report 5764432-1 (Version None)
Quarter: 2008Q2

REPORT INFORMATION
  Report Type: 
  Country: None (occurrence: None)
  Receive Date: 20080610
  Receipt Date: 20080529
  Transmission Date: 20081010
  Serious: Yes (Life-Threatening, Other)
  Sender: FDA-Public Use
  Company Number: GB-PFIZER INC-2008036736

PATIENT
  Sex: Female

DRUGS (2)
  1. MISOPROSTOL [Suspect]
     Indication: ABORTION INDUCED
  2. CO-DYDRAMOL [Concomitant]
     Dates: start: 20080425, end: 20080425

REACTIONS (8)
  - ABORTION [None]
  - ANAPHYLACTIC REACTION [None]
  - CHEST DISCOMFORT [None]
  - DYSPNOEA [None]
  - OFF LABEL USE [None]
  - PYREXIA [None]
  - RASH [None]
  - TREMOR [None]
